FAERS Safety Report 19793661 (Version 1)
Quarter: 2021Q3

REPORT INFORMATION
  Report Type: Spontaneous
  Country: CN (occurrence: CN)
  Receive Date: 20210907
  Receipt Date: 20210907
  Transmission Date: 20211014
  Serious: Yes (Other)
  Sender: FDA-Public Use
  Company Number: CN-009507513-2109CHN000682

PATIENT
  Age: 54 Year
  Sex: Female
  Weight: 71 kg

DRUGS (1)
  1. TIENAM [Suspect]
     Active Substance: CILASTATIN SODIUM\IMIPENEM
     Indication: INFLAMMATION
     Dosage: 0.5G/TIME, THREE TIMES A DAY (FREQUENCY ALSO REPORTED AS ONCE A DAY)
     Route: 041
     Dates: start: 20210702, end: 20210715

REACTIONS (7)
  - Diabetes mellitus [Unknown]
  - Cervix carcinoma stage 0 [Unknown]
  - Vomiting [Recovered/Resolved]
  - Type 2 diabetes mellitus [Unknown]
  - Wound complication [Unknown]
  - Nausea [Recovered/Resolved]
  - Decreased appetite [Recovered/Resolved]

NARRATIVE: CASE EVENT DATE: 2021
